FAERS Safety Report 7497073-9 (Version None)
Quarter: 2011Q2

REPORT INFORMATION
  Report Type: 
  Country: None (occurrence: None)
  Receive Date: 20110523
  Receipt Date: 20110517
  Transmission Date: 20111010
  Serious: Yes (Life-Threatening)
  Sender: FDA-Public Use
  Company Number: US-GENZYME-FABR-1001872

PATIENT

DRUGS (14)
  1. FABRAZYME [Suspect]
     Dosage: UNK
     Dates: start: 20110201
  2. CALCIUM CARBONATE [Concomitant]
     Indication: PRODUCT USED FOR UNKNOWN INDICATION
  3. LEXAPRO [Concomitant]
     Indication: PRODUCT USED FOR UNKNOWN INDICATION
  4. ASPIRIN [Concomitant]
     Indication: PRODUCT USED FOR UNKNOWN INDICATION
  5. PROGRAF [Concomitant]
     Indication: RENAL TRANSPLANT
  6. FABRAZYME [Suspect]
     Dosage: UNK
     Route: 042
     Dates: start: 20110304
  7. CELLCEPT [Concomitant]
     Indication: BLOOD POTASSIUM
  8. COUMADIN [Concomitant]
     Indication: HEART VALVE REPLACEMENT
  9. LORTAB [Concomitant]
     Indication: PRODUCT USED FOR UNKNOWN INDICATION
  10. BYSTOLIC [Concomitant]
     Indication: PRODUCT USED FOR UNKNOWN INDICATION
  11. FABRAZYME [Suspect]
     Indication: FABRY'S DISEASE
     Dosage: 60 MG, UNK
     Route: 042
     Dates: start: 20110318
  12. BENADRYL [Concomitant]
     Indication: PREMEDICATION
     Dosage: 25 MG, UNK
     Route: 042
  13. FABRAZYME [Suspect]
     Dosage: 70 MG, Q2W
     Route: 042
     Dates: start: 20080101
  14. ACETAMINOPHEN [Concomitant]
     Indication: PREMEDICATION
     Dosage: 1000 MG, UNK

REACTIONS (6)
  - ANAPHYLACTOID REACTION [None]
  - HYPOTENSION [None]
  - VOMITING [None]
  - PRURITUS [None]
  - NAUSEA [None]
  - RASH MACULAR [None]
